FAERS Safety Report 5729250-9 (Version None)
Quarter: 2008Q2

REPORT INFORMATION
  Report Type: 
  Country: None (occurrence: None)
  Receive Date: 20080506
  Receipt Date: 20080424
  Transmission Date: 20081010
  Serious: Yes (Hospitalization)
  Sender: FDA-Public Use
  Company Number: BR-PFIZER INC-2008019315

PATIENT
  Sex: Male
  Weight: 95 kg

DRUGS (2)
  1. SU-011,248 [Suspect]
     Indication: METASTATIC RENAL CELL CARCINOMA
     Route: 048
  2. ACETAMINOPHEN W/ CODEINE [Concomitant]
     Route: 048

REACTIONS (2)
  - CONSTIPATION [None]
  - PNEUMONIA [None]
